FAERS Safety Report 5424746-1 (Version None)
Quarter: 2007Q3

REPORT INFORMATION
  Report Type: 
  Country: None (occurrence: None)
  Receive Date: 20070824
  Receipt Date: 20070813
  Transmission Date: 20080115
  Serious: Yes (Hospitalization, Other)
  Sender: FDA-Public Use
  Company Number: US-KINGPHARMUSA00001-K200701024

PATIENT

DRUGS (8)
  1. ALTACE [Suspect]
     Indication: HYPERTENSION
     Dosage: 2.5 MG, QD
  2. ALTACE [Suspect]
     Indication: CARDIOVASCULAR DISORDER
  3. CARVEDILOL [Concomitant]
     Dosage: 3.125 MG, QD
  4. ROSUVASTATIN [Concomitant]
     Dosage: 10 MG, QD
  5. CLOPIDOGREL [Concomitant]
     Dosage: 75 MG, QD
  6. ASPIRIN [Concomitant]
     Dosage: 325 MG, QD
  7. NITROGLYCERIN [Concomitant]
     Dosage: UNK, PRN
  8. INSULIN LISPRO [Concomitant]

REACTIONS (10)
  - CARDIO-RESPIRATORY DISTRESS [None]
  - DEPRESSED LEVEL OF CONSCIOUSNESS [None]
  - DIZZINESS [None]
  - HYPOTENSION [None]
  - INCOHERENT [None]
  - NAUSEA [None]
  - OEDEMA PERIPHERAL [None]
  - RENAL FAILURE ACUTE [None]
  - SHOCK [None]
  - TACHYPNOEA [None]
